FAERS Safety Report 5912737-3 (Version None)
Quarter: 2008Q4

REPORT INFORMATION
  Report Type: 
  Country: None (occurrence: None)
  Receive Date: 20081008
  Receipt Date: 20080926
  Transmission Date: 20090506
  Serious: Yes (Death, Life-Threatening, Other)
  Sender: FDA-Public Use
  Company Number: GB-ELI_LILLY_AND_COMPANY-GB200802001341

PATIENT
  Age: 36 Year
  Sex: Female
  Weight: 108 kg

DRUGS (2)
  1. ZYPREXA [Suspect]
     Dosage: 20 MG, UNKNOWN
     Route: 048
     Dates: start: 20060310
  2. DIAZEPAM [Concomitant]
     Dosage: 15 MG, UNKNOWN
     Route: 065
     Dates: start: 20060310

REACTIONS (2)
  - DEEP VEIN THROMBOSIS [None]
  - PULMONARY EMBOLISM [None]
